FAERS Safety Report 7500491-3 (Version None)
Quarter: 2011Q2

REPORT INFORMATION
  Report Type: 
  Country: None (occurrence: None)
  Receive Date: 20110524
  Receipt Date: 20110415
  Transmission Date: 20111010
  Serious: No
  Sender: FDA-Public Use
  Company Number: US-BRISTOL-MYERS SQUIBB COMPANY-15149966

PATIENT
  Age: 79 Year
  Sex: Female

DRUGS (1)
  1. ONGLYZA [Suspect]
     Dosage: DURATION FOR WHICH THE PATIENT TOOK THERAPY WITH SAXAGLIPTIN :3 OR 4 DAYS.

REACTIONS (2)
  - SWELLING FACE [None]
  - OEDEMA PERIPHERAL [None]
